FAERS Safety Report 5274712-4 (Version None)
Quarter: 2007Q1

REPORT INFORMATION
  Report Type: 
  Country: None (occurrence: None)
  Receive Date: 20070320
  Receipt Date: 20070314
  Transmission Date: 20070707
  Serious: Yes (Other)
  Sender: FDA-Public Use
  Company Number: 011668

PATIENT
  Sex: Female

DRUGS (3)
  1. MEDROXYPROGESTERONE [Suspect]
     Dosage: ORAL
     Route: 048
     Dates: start: 19920101
  2. PREMARIN [Suspect]
     Dosage: ORAL
     Route: 048
     Dates: start: 19920101
  3. PREMPRO [Suspect]
     Dosage: ORAL
     Route: 048

REACTIONS (4)
  - BREAST CANCER IN SITU [None]
  - BREAST CANCER RECURRENT [None]
  - OESTROGEN RECEPTOR ASSAY POSITIVE [None]
  - PROGESTERONE RECEPTOR ASSAY POSITIVE [None]
